FAERS Safety Report 10108756 (Version 1)
Quarter: 2014Q2

REPORT INFORMATION
  Report Type: Spontaneous
  Country: US (occurrence: US)
  Receive Date: 20140425
  Receipt Date: 20140425
  Transmission Date: 20141212
  Serious: Yes (Other)
  Sender: FDA-Public Use
  Company Number: US-BRISTOL-MYERS SQUIBB COMPANY-20646972

PATIENT
  Age: 59 Year
  Sex: Female
  Weight: 140.59 kg

DRUGS (2)
  1. ABILIFY [Suspect]
     Indication: BIPOLAR I DISORDER
  2. LATUDA [Concomitant]

REACTIONS (3)
  - Drug dose omission [Unknown]
  - Grandiosity [Unknown]
  - Mania [Unknown]
